FAERS Safety Report 4407093-6 (Version None)
Quarter: 2004Q3

REPORT INFORMATION
  Report Type: 
  Country: None (occurrence: None)
  Receive Date: 20040721
  Receipt Date: 20040706
  Transmission Date: 20050211
  Serious: Yes (Death, Other)
  Sender: FDA-Public Use
  Company Number: USA040568563

PATIENT
  Age: 45 Year
  Sex: Male
  Weight: 110 kg

DRUGS (45)
  1. XIGRIS [Suspect]
     Indication: SEPSIS
     Dosage: 24 MG/KG/HR OTHER
     Dates: start: 20040519, end: 20040522
  2. VANCOCIN HCL [Concomitant]
  3. HUMALOG [Concomitant]
  4. NEPHROCAPS [Concomitant]
  5. FOLIC ACID [Concomitant]
  6. HEXA-BETALIN (PYRIDOXINE HYDROCHLORIDE) [Concomitant]
  7. VITAMIN B-12 [Concomitant]
  8. ALBUTEROL [Concomitant]
  9. ATROVENT [Concomitant]
  10. OXEPA [Concomitant]
  11. HUMULIN R [Concomitant]
  12. REGLAN [Concomitant]
  13. LACRI-LUBE [Concomitant]
  14. FERROUS SULFATE TAB [Concomitant]
  15. POTASSIUM CHLORIDE [Concomitant]
  16. SODIUM BICARBONATE [Concomitant]
  17. ALBUMINAR (ALBUMIN NORMAL HUMAN SERUM) [Concomitant]
  18. LOPRESSOR [Concomitant]
  19. LANOXIN [Concomitant]
  20. DEXTROSE 50% [Concomitant]
  21. CALCIUM CHLORIDE [Concomitant]
  22. APLISOL [Concomitant]
  23. CANDIN SKIN TEST [Concomitant]
  24. TRICOPHYTON SKIN TEST [Concomitant]
  25. TUMS (CALCIUM CARBONATE) [Concomitant]
  26. SOLU-MEDROL [Concomitant]
  27. NEOSPORIN [Concomitant]
  28. ISOPHANE INSULIN [Concomitant]
  29. AQUAMEPHYTON (PHYTOMENADIONE) [Concomitant]
  30. EPINEPHRINE [Concomitant]
  31. PROTONIX [Concomitant]
  32. CANCIDAS [Concomitant]
  33. MAXIPIME [Concomitant]
  34. CIPRO [Concomitant]
  35. GENTAMYCIN SULFATE [Concomitant]
  36. ABELCET [Concomitant]
  37. METRONIDAZOLE [Concomitant]
  38. FAMOTIDNE [Concomitant]
  39. PHENERGAN [Concomitant]
  40. MORPHINE SULFATE [Concomitant]
  41. KRISTALOSE (LACTULOSE) [Concomitant]
  42. ATIVAN [Concomitant]
  43. EXTRA STRENGTH TYLENOL [Concomitant]
  44. MOTRIN [Concomitant]
  45. NEO-SYNEPHRINE (PHENYLEPHRINE HYDROCHLORIDE) [Concomitant]

REACTIONS (11)
  - ACTIVATED PARTIAL THROMBOPLASTIN TIME PROLONGED [None]
  - BLOOD CREATINE INCREASED [None]
  - BLOOD UREA INCREASED [None]
  - DRUG INEFFECTIVE [None]
  - FAECAL OCCULT BLOOD POSITIVE [None]
  - HAEMATOCRIT DECREASED [None]
  - HAEMOGLOBIN DECREASED [None]
  - PLATELET COUNT DECREASED [None]
  - PROTHROMBIN TIME PROLONGED [None]
  - SPUTUM CULTURE POSITIVE [None]
  - WHITE BLOOD CELL COUNT INCREASED [None]
